FAERS Safety Report 4427190-9 (Version None)
Quarter: 2004Q3

REPORT INFORMATION
  Report Type: 
  Country: None (occurrence: None)
  Receive Date: 20040726
  Receipt Date: 20040517
  Transmission Date: 20050211
  Serious: Yes (Hospitalization)
  Sender: FDA-Public Use
  Company Number: USA040567837

PATIENT
  Sex: Female

DRUGS (4)
  1. FORTEO [Suspect]
     Dates: start: 20040101
  2. TRISENOX [Concomitant]
  3. NEURONTIN [Concomitant]
  4. CITRACAL (CALCIUM CITRATE) [Concomitant]

REACTIONS (2)
  - BACK PAIN [None]
  - PNEUMONIA [None]
